FAERS Safety Report 4852085-6 (Version None)
Quarter: 2005Q4

REPORT INFORMATION
  Report Type: 
  Country: None (occurrence: None)
  Receive Date: 20051209
  Receipt Date: 20030507
  Transmission Date: 20060501
  Serious: Yes (Life-Threatening, Hospitalization)
  Sender: FDA-Public Use
  Company Number: 12988

PATIENT
  Age: 85 Year
  Sex: Female

DRUGS (23)
  1. MORPHINE [Suspect]
     Indication: PAIN
     Dosage: 14 MG DAILY IT
     Route: 037
     Dates: end: 20011013
  2. MORPHINE [Suspect]
     Indication: PAIN
     Dosage: 5 MG DAILY IT
     Route: 037
     Dates: start: 20011013
  3. CALCIUM WITH VITAMIN D [Concomitant]
  4. ASPIRIN [Concomitant]
  5. MOBIC [Concomitant]
  6. DOCUSATE W/CASANTHRANOL [Concomitant]
  7. AZMACORT [Concomitant]
  8. COMBIVENT [Concomitant]
  9. SEREVENT [Concomitant]
  10. ARICEPT [Concomitant]
  11. VITAMIN E [Concomitant]
  12. REMERON [Concomitant]
  13. LESCOL [Concomitant]
  14. MIACALCIN [Concomitant]
  15. ULTRAM [Concomitant]
  16. TLOX [Concomitant]
  17. TRINOSCON [Concomitant]
  18. DIGOXIN [Concomitant]
  19. DIGOXIN [Concomitant]
  20. MAXZIDE [Concomitant]
  21. LASIX [Concomitant]
  22. KLONOPIN [Concomitant]
  23. EFFEXOR XR [Concomitant]

REACTIONS (15)
  - BLOOD PH DECREASED [None]
  - BLOOD PRESSURE DECREASED [None]
  - CONFUSIONAL STATE [None]
  - DEPRESSED LEVEL OF CONSCIOUSNESS [None]
  - DRUG TOXICITY [None]
  - DYSARTHRIA [None]
  - DYSPNOEA [None]
  - INCORRECT DOSE ADMINISTERED [None]
  - LETHARGY [None]
  - MIOSIS [None]
  - NAUSEA [None]
  - PCO2 INCREASED [None]
  - PO2 DECREASED [None]
  - RENAL FAILURE [None]
  - VOMITING [None]
